FAERS Safety Report 8948374 (Version 1)
Quarter: 2012Q4

REPORT INFORMATION
  Report Type: 
  Country: AT (occurrence: AT)
  Receive Date: 20121206
  Receipt Date: 20121206
  Transmission Date: 20130627
  Serious: Yes (Death, Other)
  Sender: FDA-Public Use
  Company Number: PHHY2012AT110983

PATIENT
  Age: 38 Year
  Sex: Male

DRUGS (1)
  1. CICLOSPORIN [Suspect]
     Indication: PROPHYLAXIS AGAINST GRAFT VERSUS HOST DISEASE

REACTIONS (5)
  - Lymphoplasmacytoid lymphoma/immunocytoma recurrent [Fatal]
  - Visual impairment [Fatal]
  - Malignant neoplasm progression [Fatal]
  - Chronic graft versus host disease in intestine [Recovering/Resolving]
  - Chronic graft versus host disease in skin [Recovering/Resolving]
